FAERS Safety Report 4752726-8 (Version None)
Quarter: 2005Q3

REPORT INFORMATION
  Report Type: 
  Country: None (occurrence: None)
  Receive Date: 20050823
  Receipt Date: 20050519
  Transmission Date: 20060218
  Serious: Yes (Other)
  Sender: FDA-Public Use
  Company Number: 2005076839

PATIENT
  Age: 79 Year
  Sex: Female
  Weight: 73.4827 kg

DRUGS (12)
  1. NORVASC [Suspect]
     Indication: HYPERTENSION
     Dosage: 5 MG (5 MG, 1 IN 1 D), ORAL
     Route: 048
  2. DIOVANE (VALSARTAN) [Concomitant]
  3. ISOSORBIDE (ISOSORBIDE) [Concomitant]
  4. PHOSLO [Concomitant]
  5. PLAVIX [Concomitant]
  6. PRANDIN [Concomitant]
  7. SYNTHROID [Concomitant]
  8. FEOSOL (FERROUS SULFATE) [Concomitant]
  9. CRESTOR [Concomitant]
  10. VITAMINS (VITAMINS) [Concomitant]
  11. INSULIN (INSULIN) [Concomitant]
  12. ALPHA LIPOIC ACID (THIOCTIC ACID) [Concomitant]

REACTIONS (1)
  - ISCHAEMIA [None]
